FAERS Safety Report 9295201 (Version 1)
Quarter: 2013Q2

REPORT INFORMATION
  Report Type: Spontaneous
  Country: US (occurrence: US)
  Receive Date: 20130516
  Receipt Date: 20130516
  Transmission Date: 20140414
  Serious: Yes (Other)
  Sender: FDA-Public Use
  Company Number: US-RB-053545-13

PATIENT
  Age: 37 Year
  Sex: Female

DRUGS (6)
  1. SUBOXONE FILM [Suspect]
     Indication: DRUG DEPENDENCE
     Dosage: SUBOXONE FILM
     Route: 060
     Dates: start: 201210
  2. QUETIAPINE [Suspect]
     Indication: BIPOLAR DISORDER
     Route: 048
     Dates: start: 201204, end: 201304
  3. TRAZODONE [Suspect]
     Indication: INSOMNIA
     Route: 048
     Dates: start: 201204, end: 201304
  4. METOPROLOL [Suspect]
     Indication: HYPERTENSION
     Route: 048
     Dates: start: 2012
  5. HYDROCHLOROTHIAZIDE [Suspect]
     Indication: HYPERTENSION
     Route: 048
     Dates: start: 2012
  6. SERTRALINE [Suspect]
     Indication: DEPRESSION
     Dosage: DOSAGE UNKNOWN
     Route: 048

REACTIONS (6)
  - Exposure during pregnancy [Recovered/Resolved]
  - Abortion spontaneous [Recovered/Resolved]
  - Depression [Not Recovered/Not Resolved]
  - Insomnia [Not Recovered/Not Resolved]
  - Condition aggravated [Not Recovered/Not Resolved]
  - Drug dependence [Not Recovered/Not Resolved]
